FAERS Safety Report 7756143-8 (Version None)
Quarter: 2011Q3

REPORT INFORMATION
  Report Type: 
  Country: None (occurrence: None)
  Receive Date: 20110916
  Receipt Date: 20100715
  Transmission Date: 20111222
  Serious: No
  Sender: FDA-Public Use
  Company Number: US-BAYER-201030399NA

PATIENT
  Age: 43 Year
  Sex: Female

DRUGS (1)
  1. MIRENA [Suspect]
     Indication: CONTRACEPTION
     Dosage: UNK
     Dates: start: 20100111, end: 20100702

REACTIONS (4)
  - DEVICE EXPULSION [None]
  - INFECTION [None]
  - VAGINAL HAEMORRHAGE [None]
  - UTERINE SPASM [None]
